FAERS Safety Report 5842916-5 (Version None)
Quarter: 2008Q3

REPORT INFORMATION
  Report Type: 
  Country: None (occurrence: None)
  Receive Date: 20080813
  Receipt Date: 20080807
  Transmission Date: 20090109
  Serious: Yes (Hospitalization)
  Sender: FDA-Public Use
  Company Number: FR-WYE-G01977408

PATIENT
  Sex: Female

DRUGS (9)
  1. EFFEXOR [Suspect]
     Indication: RESTLESS LEGS SYNDROME
     Route: 048
     Dates: start: 20080627, end: 20080702
  2. ASPIRIN [Concomitant]
     Dosage: UNKNOWN
     Route: 048
  3. OMEPRAZOLE [Concomitant]
     Dosage: UNKNOWN
     Route: 048
  4. TARDYFERON [Concomitant]
     Dosage: UNKNOWN
     Route: 048
  5. ATHYMIL [Concomitant]
     Dosage: UNKNOWN
     Route: 048
  6. IMOVANE [Concomitant]
     Dosage: UNKNOWN
     Route: 048
  7. DAFALGAN [Concomitant]
     Dosage: UNKNOWN
     Route: 048
  8. CORDARONE [Concomitant]
     Dosage: UNKNOWN
     Route: 048
  9. AMLOR [Concomitant]
     Dosage: UNKNOWN
     Route: 048

REACTIONS (3)
  - ESCHERICHIA INFECTION [None]
  - HYPERTHERMIA [None]
  - HYPONATRAEMIA [None]
